FAERS Safety Report 20151265 (Version 1)
Quarter: 2021Q4

REPORT INFORMATION
  Report Type: Report from Study
  Country: JP (occurrence: JP)
  Receive Date: 20211206
  Receipt Date: 20211206
  Transmission Date: 20220303
  Serious: Yes (Hospitalization)
  Sender: FDA-Public Use
  Company Number: JP-ELI_LILLY_AND_COMPANY-JP202104000384

PATIENT
  Age: 65 Year
  Sex: Male
  Weight: 67 kg

DRUGS (6)
  1. CYRAMZA [Suspect]
     Active Substance: RAMUCIRUMAB
     Indication: Gastric cancer stage IV
     Dosage: 8 MG/KG, CYCLICAL
     Route: 042
     Dates: start: 20210119, end: 20210316
  2. ABRAXANE [Concomitant]
     Active Substance: PACLITAXEL
     Indication: Gastric cancer stage IV
     Dosage: 100 MG/M2, CYCLICAL
     Route: 042
     Dates: start: 20210119, end: 20210316
  3. CANDESARTAN [Concomitant]
     Active Substance: CANDESARTAN
     Indication: Hypertension
     Dosage: 4 MG, DAILY
     Route: 048
     Dates: end: 20210316
  4. AMLODIPINE [Concomitant]
     Active Substance: AMLODIPINE BESYLATE
     Indication: Hypertension
     Dosage: 2.5 MG, DAILY
     Route: 048
     Dates: start: 20190313, end: 20210316
  5. RABEPRAZOLE SODIUM [Concomitant]
     Active Substance: RABEPRAZOLE SODIUM
     Indication: Dyspepsia
     Dosage: 10 MG, DAILY
     Route: 048
     Dates: start: 20200222, end: 20210316
  6. BILASTINE [Concomitant]
     Active Substance: BILASTINE
     Indication: Seasonal allergy
     Dosage: 20 MG, DAILY
     Route: 048
     Dates: start: 20200216, end: 20210316

REACTIONS (1)
  - Tumour perforation [Recovered/Resolved]

NARRATIVE: CASE EVENT DATE: 20210319
